FAERS Safety Report 15325851 (Version 2)
Quarter: 2018Q3

REPORT INFORMATION
  Report Type: Report from Study
  Country: US (occurrence: US)
  Receive Date: 20180828
  Receipt Date: 20180926
  Transmission Date: 20181010
  Serious: Yes (Hospitalization, Other)
  Sender: FDA-Public Use
  Company Number: US-MYLANLABS-2018M1063621

PATIENT
  Age: 61 Year
  Sex: Male

DRUGS (5)
  1. EPACADOSTAT [Suspect]
     Active Substance: EPACADOSTAT
     Indication: NEOPLASM MALIGNANT
     Dosage: 100 MG, UNK
     Route: 048
     Dates: start: 20180328, end: 20180724
  2. EPACADOSTAT [Suspect]
     Active Substance: EPACADOSTAT
     Dosage: UNK
     Dates: start: 20180731
  3. CARBOPLATIN. [Suspect]
     Active Substance: CARBOPLATIN
     Indication: NEOPLASM MALIGNANT
     Dosage: 710 MG, Q3W
     Route: 042
     Dates: start: 20180328
  4. PACLITAXEL MYLAN [Suspect]
     Active Substance: PACLITAXEL
     Indication: NEOPLASM MALIGNANT
     Dosage: 135 MG/M2, Q3W
     Route: 042
     Dates: start: 20180328
  5. NIVOLUMAB [Suspect]
     Active Substance: NIVOLUMAB
     Indication: NEOPLASM MALIGNANT
     Dosage: 360 MG, Q3W
     Route: 042
     Dates: start: 20180328

REACTIONS (2)
  - Febrile neutropenia [Recovered/Resolved]
  - White blood cell disorder [Unknown]

NARRATIVE: CASE EVENT DATE: 20180724
